FAERS Safety Report 9395120 (Version 12)
Quarter: 2015Q4

REPORT INFORMATION
  Report Type: Spontaneous
  Country: CA (occurrence: CA)
  Receive Date: 20130711
  Receipt Date: 20151228
  Transmission Date: 20160305
  Serious: Yes (Hospitalization, Other)
  Sender: FDA-Public Use
  Company Number: CA-ROCHE-GNE304003

PATIENT
  Age: 41 Year
  Sex: Female
  Weight: 83.99 kg

DRUGS (11)
  1. XOLAIR [Suspect]
     Active Substance: OMALIZUMAB
     Route: 058
     Dates: start: 20140326
  2. SYMBICORT [Concomitant]
     Active Substance: BUDESONIDE\FORMOTEROL FUMARATE DIHYDRATE
     Dosage: 2 ML, UNK
     Route: 065
  3. VENTOLIN [Concomitant]
     Active Substance: ALBUTEROL SULFATE
     Dosage: PUFFERS MORE OFTEN (5 TIMES PER DAY)
     Route: 065
     Dates: start: 20130919
  4. UNIPHYL [Concomitant]
     Active Substance: THEOPHYLLINE ANHYDROUS
     Dosage: 400 MG, UNK
     Route: 065
  5. SPIRIVA [Concomitant]
     Active Substance: TIOTROPIUM BROMIDE MONOHYDRATE
     Dosage: AT BREAKFAST
     Route: 065
  6. SINGULAIR [Concomitant]
     Active Substance: MONTELUKAST SODIUM
     Dosage: 10 MG, UNK
     Route: 065
  7. XOLAIR [Suspect]
     Active Substance: OMALIZUMAB
     Route: 058
     Dates: start: 20090413
  8. XOLAIR [Suspect]
     Active Substance: OMALIZUMAB
     Indication: ASTHMA
     Route: 058
     Dates: start: 20080129
  9. NASONEX [Concomitant]
     Active Substance: MOMETASONE FUROATE
  10. NOVO-PREDNISONE [Concomitant]
     Active Substance: PREDNISONE
  11. BRICANYL [Concomitant]
     Active Substance: TERBUTALINE SULFATE

REACTIONS (19)
  - Asthma [Not Recovered/Not Resolved]
  - Sleep apnoea syndrome [Unknown]
  - Bronchitis [Recovered/Resolved]
  - Productive cough [Unknown]
  - Respiratory tract congestion [Unknown]
  - Pulmonary congestion [Recovered/Resolved]
  - Anxiety [Unknown]
  - Fatigue [Unknown]
  - Headache [Not Recovered/Not Resolved]
  - Cough [Recovering/Resolving]
  - Weight decreased [Unknown]
  - Therapeutic response decreased [Unknown]
  - Oral fungal infection [Unknown]
  - Oropharyngeal pain [Unknown]
  - Upper respiratory tract congestion [Not Recovered/Not Resolved]
  - Dyspnoea [Recovering/Resolving]
  - Heart rate decreased [Unknown]
  - Hypersensitivity [Unknown]
  - Sinusitis [Recovered/Resolved]

NARRATIVE: CASE EVENT DATE: 20080129
